FAERS Safety Report 4501643-7 (Version None)
Quarter: 2004Q4

REPORT INFORMATION
  Report Type: 
  Country: None (occurrence: None)
  Receive Date: 20041115
  Receipt Date: 20041115
  Transmission Date: 20050328
  Serious: Yes (Hospitalization)
  Sender: FDA-Public Use
  Company Number: None

PATIENT
  Age: 47 Year
  Sex: Female
  Weight: 71.2147 kg

DRUGS (4)
  1. LIDOCAINE HCL AND EPINEPHRINE [Suspect]
     Indication: LOCAL ANAESTHESIA
     Dosage: INFILTRATED LOCALLY INTO SURGICAL SITE
     Dates: start: 20040908
  2. MARCAINE [Suspect]
  3. VERSED [Concomitant]
  4. DIPRIVAN [Concomitant]

REACTIONS (7)
  - CHEST PAIN [None]
  - DYSPNOEA [None]
  - INFILTRATION ANAESTHESIA [None]
  - MOVEMENT DISORDER [None]
  - PAIN IN EXTREMITY [None]
  - RESTLESSNESS [None]
  - SUPRAVENTRICULAR TACHYCARDIA [None]
